FAERS Safety Report 6785535-9 (Version None)
Quarter: 2010Q2

REPORT INFORMATION
  Report Type: 
  Country: None (occurrence: None)
  Receive Date: 20100621
  Receipt Date: 20100621
  Transmission Date: 20101027
  Serious: Yes (Hospitalization)
  Sender: FDA-Public Use
  Company Number: None

PATIENT
  Age: 50 Year
  Weight: 92.6 kg

DRUGS (8)
  1. ASPIRIN [Suspect]
     Indication: CHEST PAIN
     Dosage: 15 TABLETS X2 ONCE PO
     Route: 048
  2. BC POWDERS [Suspect]
     Indication: CHEST PAIN
     Dosage: 6 POWDERS ONCE PO
     Route: 048
  3. NARCO [Concomitant]
  4. PRAVACHOL [Concomitant]
  5. DARVOCET [Concomitant]
  6. NEXIUM [Concomitant]
  7. FISH OIL [Concomitant]
  8. FLONASE [Concomitant]

REACTIONS (5)
  - ANXIETY [None]
  - CHEST PAIN [None]
  - DRUG SCREEN POSITIVE [None]
  - INSOMNIA [None]
  - PRESYNCOPE [None]
